FAERS Safety Report 23313023 (Version 2)
Quarter: 2024Q4

REPORT INFORMATION
  Report Type: Spontaneous
  Country: US (occurrence: US)
  Receive Date: 20231219
  Receipt Date: 20241219
  Transmission Date: 20250114
  Serious: No
  Sender: RECORDATI
  Company Number: US-RECORDATI-2023004655

PATIENT

DRUGS (7)
  1. SIGNIFOR [Suspect]
     Active Substance: PASIREOTIDE DIASPARTATE
     Indication: Cushing^s syndrome
     Dosage: 0.9 MILLIGRAM, QD (NIGHT TIME)
     Route: 065
     Dates: start: 20201214, end: 202306
  2. SIGNIFOR [Suspect]
     Active Substance: PASIREOTIDE DIASPARTATE
     Dosage: 0.9 MILLIGRAM, QD (DAY TIME)
     Route: 065
     Dates: start: 202306
  3. CULTURELLE DIGESTIVE HEALTH DAILY PROBIOTIC [Concomitant]
     Indication: Product used for unknown indication
     Dosage: UNK, QD
  4. MIRTAZAPINE [Concomitant]
     Active Substance: MIRTAZAPINE
     Indication: Product used for unknown indication
     Dosage: 15 MILLIGRAM, QD
  5. NOVOLOG [Concomitant]
     Active Substance: INSULIN ASPART
     Indication: Product used for unknown indication
     Dosage: FLEX PEN
  6. TRESIBA [Concomitant]
     Active Substance: INSULIN DEGLUDEC
     Indication: Product used for unknown indication
     Dosage: UNK, QW
  7. ZOFRAN [Concomitant]
     Active Substance: ONDANSETRON HYDROCHLORIDE
     Indication: Product used for unknown indication
     Dosage: 4 MILLIGRAM, PRN

REACTIONS (3)
  - Abdominal discomfort [Unknown]
  - Blood glucose increased [Unknown]
  - Off label use [Recovered/Resolved]

NARRATIVE: CASE EVENT DATE: 20201214
